FAERS Safety Report 24072931 (Version 3)
Quarter: 2024Q3

REPORT INFORMATION
  Report Type: Spontaneous
  Country: DE (occurrence: DE)
  Receive Date: 20240710
  Receipt Date: 20240912
  Transmission Date: 20241017
  Serious: Yes (Other)
  Sender: ROCHE
  Company Number: None

PATIENT
  Sex: Female

DRUGS (4)
  1. XELODA [Suspect]
     Active Substance: CAPECITABINE
     Indication: Breast cancer
     Dosage: LLNE OF TREATMENT: LINE 1
     Route: 065
     Dates: start: 20200817, end: 20211214
  2. XELODA [Suspect]
     Active Substance: CAPECITABINE
     Dosage: LAST DOSE PRIOR EVENT (MG)
     Route: 065
     Dates: start: 20210125, end: 20210125
  3. AVASTIN [Suspect]
     Active Substance: BEVACIZUMAB
     Indication: Breast cancer
     Dosage: LINE OF TREATMENT: LINE 1
     Route: 065
     Dates: start: 20200817, end: 20211129
  4. AVASTIN [Suspect]
     Active Substance: BEVACIZUMAB
     Dosage: LAST DOSE PRIOR EVENT (MG)
     Route: 065
     Dates: start: 20201218, end: 20201218

REACTIONS (1)
  - Cardiac failure [Recovered/Resolved]

NARRATIVE: CASE EVENT DATE: 20210125
